FAERS Safety Report 26206604 (Version 1)
Quarter: 2025Q4

REPORT INFORMATION
  Report Type: Spontaneous
  Country: CN (occurrence: CN)
  Receive Date: 20251229
  Receipt Date: 20251229
  Transmission Date: 20260118
  Serious: Yes (Other)
  Sender: ROCHE
  Company Number: CN-ROCHE-10000462338

PATIENT
  Age: 46 Year
  Sex: Female

DRUGS (15)
  1. SATRALIZUMAB [Suspect]
     Active Substance: SATRALIZUMAB
     Indication: Neuromyelitis optica spectrum disorder
  2. SATRALIZUMAB [Suspect]
     Active Substance: SATRALIZUMAB
  3. SATRALIZUMAB [Suspect]
     Active Substance: SATRALIZUMAB
  4. SATRALIZUMAB [Suspect]
     Active Substance: SATRALIZUMAB
  5. SATRALIZUMAB [Suspect]
     Active Substance: SATRALIZUMAB
  6. MYCOPHENOLATE MOFETIL [Suspect]
     Active Substance: MYCOPHENOLATE MOFETIL
     Indication: Neuromyelitis optica spectrum disorder
  7. MYCOPHENOLATE MOFETIL [Suspect]
     Active Substance: MYCOPHENOLATE MOFETIL
  8. SATRALIZUMAB [Suspect]
     Active Substance: SATRALIZUMAB
     Indication: Neuromyelitis optica spectrum disorder
     Route: 058
  9. METHYLPREDNISOLONE [Concomitant]
     Active Substance: METHYLPREDNISOLONE
  10. CITICOLINE SODIUM [Concomitant]
     Active Substance: CITICOLINE SODIUM
  11. PREDNISONE ACETATE [Concomitant]
     Active Substance: PREDNISONE ACETATE
  12. PREDNISONE ACETATE [Concomitant]
     Active Substance: PREDNISONE ACETATE
  13. Omeprazole Sodium for Injection [Concomitant]
     Route: 041
  14. PREGABALIN [Concomitant]
     Active Substance: PREGABALIN
  15. methylprednisolone sodium succinate injection [Concomitant]
     Indication: Muscular weakness
     Route: 041

REACTIONS (9)
  - Infective exacerbation of bronchiectasis [Unknown]
  - Off label use [Unknown]
  - Pneumonia bacterial [Unknown]
  - Fatigue [Unknown]
  - Hypoaesthesia [Unknown]
  - Dysuria [Unknown]
  - Hypokalaemia [Unknown]
  - Abdominal pain upper [Unknown]
  - Optic atrophy [Unknown]
